FAERS Safety Report 9759839 (Version 2)
Quarter: 2013Q4

REPORT INFORMATION
  Report Type: Report from Study
  Country: TR (occurrence: TR)
  Receive Date: 20131216
  Receipt Date: 20131219
  Transmission Date: 20140711
  Serious: Yes (Hospitalization)
  Sender: FDA-Public Use
  Company Number: TR-SA-2013SA126860

PATIENT
  Sex: Female
  Weight: 100 kg

DRUGS (12)
  1. PLAVIX [Suspect]
     Indication: ATRIAL FIBRILLATION
     Route: 065
  2. COUMADIN [Suspect]
     Indication: ATRIAL FIBRILLATION
     Route: 065
  3. ECOPIRIN [Suspect]
     Indication: ATRIAL FIBRILLATION
     Route: 065
  4. ACE INHIBITOR NOS [Concomitant]
     Indication: HYPERTENSION
  5. BETA BLOCKING AGENTS [Concomitant]
     Indication: HYPERTENSION
  6. BETA BLOCKING AGENTS [Concomitant]
     Indication: CORONARY ARTERY DISEASE
  7. ASPIRIN [Concomitant]
     Indication: CORONARY ARTERY DISEASE
  8. HMG COA REDUCTASE INHIBITORS [Concomitant]
     Indication: CORONARY ARTERY DISEASE
  9. HMG COA REDUCTASE INHIBITORS [Concomitant]
     Indication: HYPERLIPIDAEMIA
  10. INSULIN [Concomitant]
     Indication: DIABETES MELLITUS
  11. DIURETICS [Concomitant]
     Indication: CARDIAC FAILURE
  12. BELOC ZOK [Concomitant]
     Indication: ATRIAL FIBRILLATION

REACTIONS (1)
  - Embolism [Unknown]
